FAERS Safety Report 23956354 (Version 2)
Quarter: 2024Q2

REPORT INFORMATION
  Report Type: Spontaneous
  Country: RU (occurrence: RU)
  Receive Date: 20240610
  Receipt Date: 20240625
  Transmission Date: 20240716
  Serious: Yes (Death, Other)
  Sender: FDA-Public Use
  Company Number: RU-ROCHE-3576542

PATIENT
  Sex: Female

DRUGS (1)
  1. OCREVUS [Suspect]
     Active Substance: OCRELIZUMAB
     Indication: Product used for unknown indication
     Dosage: HER LAST CCREVUS INFUSION IN SEP/2023
     Route: 065

REACTIONS (4)
  - Sepsis [Fatal]
  - Pulmonary embolism [Unknown]
  - Venous thrombosis limb [Unknown]
  - Decubitus ulcer [Unknown]
